FAERS Safety Report 10233639 (Version 1)
Quarter: 2014Q2

REPORT INFORMATION
  Report Type: Spontaneous
  Country: AU (occurrence: None)
  Receive Date: 20140610
  Receipt Date: 20140610
  Transmission Date: 20141212
  Serious: Yes (Death)
  Sender: FDA-Public Use
  Company Number: 2014-001636

PATIENT
  Age: 77 Year
  Sex: Male

DRUGS (15)
  1. ACTONEL [Suspect]
     Route: 048
  2. OLANZAPINE [Suspect]
     Dates: end: 20140123
  3. ATORVASTATIN [Suspect]
     Dates: start: 20140119
  4. PARACETAMOL [Suspect]
  5. SODIUM VALPROATE [Suspect]
     Dates: start: 20140123
  6. PANTOPRAZOLE [Suspect]
  7. BENZTROPINE MESYLATE (BENZATROPINE MESILATE) [Concomitant]
  8. CEFTRIAXONE (CEFTRIAXONE) [Concomitant]
  9. COLECALCIFEROL (COLECALCIFEROL) [Concomitant]
  10. FRUSEMIDE (FUROSEMIDE) [Concomitant]
  11. METFORMIN HYDROCHLORIDE (METFORMIN HYDROCHLORIDE) [Concomitant]
  12. MIRTAZAPINE (MIRTAZAPINE) [Concomitant]
  13. SPIRONOLACTONE (SPIRONOLACTONE) [Concomitant]
  14. WARFARIN SODIUM (WARFARIN SODIUM) [Concomitant]
  15. CARVEDILOL HYDROCHLORIDE (CARVEDILOL HYDROCHLORIDE) [Concomitant]

REACTIONS (4)
  - Acute hepatic failure [None]
  - Medication error [None]
  - Encephalopathy [None]
  - Drug prescribing error [None]
